FAERS Safety Report 23089334 (Version 1)
Quarter: 2023Q4

REPORT INFORMATION
  Report Type: Spontaneous
  Country: DE (occurrence: DE)
  Receive Date: 20231020
  Receipt Date: 20231020
  Transmission Date: 20240110
  Serious: Yes (Congenital Anomaly, Other)
  Sender: FDA-Public Use
  Company Number: None

PATIENT
  Age: 1 Day
  Sex: Female
  Weight: 2 kg

DRUGS (4)
  1. VENLAFAXINE [Suspect]
     Active Substance: VENLAFAXINE HYDROCHLORIDE
     Indication: Product used for unknown indication
     Dosage: MOTHER DOSE: 37.5 [MG/D]  FROM 29/01/2021 TO 15/10/2021 FOR 259 DAYS
     Route: 064
  2. INSULIN NOS [Concomitant]
     Active Substance: INSULIN NOS
     Indication: Product used for unknown indication
     Dosage: MOTHER^S DOSE: 4 IU/D
     Route: 065
  3. METHYLDOPA [Concomitant]
     Active Substance: METHYLDOPA
     Indication: Product used for unknown indication
     Dosage: MOTHER DOSE: 250 [MG/D ] PER DAY
     Route: 064
  4. ASPIRIN [Concomitant]
     Active Substance: ASPIRIN
     Indication: Product used for unknown indication
     Dosage: MOTHER DOSE: 100 [MG/D]
     Route: 064

REACTIONS (4)
  - Foetal exposure during pregnancy [Unknown]
  - Haemangioma of liver [Not Recovered/Not Resolved]
  - Small for dates baby [Unknown]
  - Infantile haemangioma [Not Recovered/Not Resolved]

NARRATIVE: CASE EVENT DATE: 20211001
